FAERS Safety Report 10146466 (Version 3)
Quarter: 2014Q4

REPORT INFORMATION
  Report Type: Spontaneous
  Country: US (occurrence: US)
  Receive Date: 20140501
  Receipt Date: 20141017
  Transmission Date: 20150528
  Serious: Yes (Life-Threatening)
  Sender: FDA-Public Use
  Company Number: US-BAYER-2014-062923

PATIENT
  Age: 25 Year
  Sex: Female

DRUGS (3)
  1. LUPRON [Concomitant]
     Active Substance: LEUPROLIDE ACETATE
  2. MIRENA [Suspect]
     Active Substance: LEVONORGESTREL
     Indication: CONTRACEPTION
     Dosage: 20 MCG/24HR, CONT
     Route: 015
     Dates: start: 20060901, end: 20131125
  3. MORPHINE [Concomitant]
     Active Substance: MORPHINE
     Indication: ABDOMINAL PAIN
     Dosage: UNK
     Dates: start: 201211, end: 201303

REACTIONS (14)
  - Anxiety [None]
  - Depression [None]
  - Irritability [None]
  - Emotional distress [None]
  - Headache [None]
  - Device issue [None]
  - Device difficult to use [None]
  - Abdominal pain [None]
  - Pain [None]
  - Injury [None]
  - Anhedonia [None]
  - General physical health deterioration [None]
  - Uterine perforation [None]
  - Pregnancy with contraceptive device [None]

NARRATIVE: CASE EVENT DATE: 2007
